FAERS Safety Report 5022556-0 (Version None)
Quarter: 2006Q2

REPORT INFORMATION
  Report Type: 
  Country: None (occurrence: None)
  Receive Date: 20060605
  Receipt Date: 20060522
  Transmission Date: 20061013
  Serious: Yes (Other)
  Sender: FDA-Public Use
  Company Number: DE200605005630

PATIENT
  Sex: Female
  Weight: 78 kg

DRUGS (3)
  1. CYMBALTA [Suspect]
     Indication: DEPRESSION
     Dosage: 60 MG, DAILY (1/D), ORAL
     Route: 048
     Dates: start: 20050701, end: 20060501
  2. MICARDIS [Concomitant]
  3. ISOTIN - SLOW RELEASE (VERAPAMIL HYDROCHLORIDE) [Concomitant]

REACTIONS (3)
  - INCONTINENCE [None]
  - SLEEP DISORDER [None]
  - WEIGHT INCREASED [None]
